FAERS Safety Report 15718072 (Version 1)
Quarter: 2018Q4

REPORT INFORMATION
  Report Type: Spontaneous
  Country: AU (occurrence: AU)
  Receive Date: 20181213
  Receipt Date: 20181213
  Transmission Date: 20190205
  Serious: Yes (Other)
  Sender: FDA-Public Use
  Company Number: AU-ABBVIE-18K-008-2581956-00

PATIENT
  Age: 41 Year
  Sex: Female

DRUGS (3)
  1. HUMIRA [Suspect]
     Active Substance: ADALIMUMAB
     Indication: SERONEGATIVE ARTHRITIS
     Route: 058
     Dates: start: 20130501, end: 20180315
  2. METHOTREXATE. [Concomitant]
     Active Substance: METHOTREXATE
     Indication: PRODUCT USED FOR UNKNOWN INDICATION
  3. PREDNISONE. [Concomitant]
     Active Substance: PREDNISONE
     Indication: PRODUCT USED FOR UNKNOWN INDICATION

REACTIONS (23)
  - Constipation [Unknown]
  - Temporal arteritis [Unknown]
  - Temperature intolerance [Unknown]
  - Nausea [Unknown]
  - Medical device site discomfort [Unknown]
  - Dysphonia [Recovered/Resolved]
  - Bruxism [Unknown]
  - Fatigue [Recovered/Resolved with Sequelae]
  - Hypersomnia [Unknown]
  - Night sweats [Unknown]
  - Ear discomfort [Unknown]
  - Migraine with aura [Recovered/Resolved with Sequelae]
  - Headache [Recovered/Resolved with Sequelae]
  - Temporomandibular joint syndrome [Recovered/Resolved with Sequelae]
  - Infected dermal cyst [Unknown]
  - Gait disturbance [Unknown]
  - Neuropathy peripheral [Recovered/Resolved]
  - Paraesthesia [Not Recovered/Not Resolved]
  - Body temperature increased [Unknown]
  - Nasopharyngitis [Unknown]
  - Hypergammaglobulinaemia benign monoclonal [Unknown]
  - Snoring [Unknown]
  - Restless legs syndrome [Unknown]

NARRATIVE: CASE EVENT DATE: 2016
